FAERS Safety Report 8143675-6 (Version None)
Quarter: 2012Q1

REPORT INFORMATION
  Report Type: 
  Country: None (occurrence: None)
  Receive Date: 20120103
  Receipt Date: 20111007
  Transmission Date: 20120608
  Serious: No
  Sender: FDA-Public Use
  Company Number: AE-2011-002124

PATIENT
  Sex: Female

DRUGS (4)
  1. COPEGUS [Concomitant]
  2. BETA BLOCKER (BETA BLOCKING AGENTS) [Concomitant]
  3. INCIVEK [Suspect]
     Dosage: 2250 MG (750 MG, 3 IN 1 D)
     Dates: start: 20110921
  4. PEGASYS [Concomitant]

REACTIONS (2)
  - NAUSEA [None]
  - INSOMNIA [None]
